FAERS Safety Report 16934750 (Version 1)
Quarter: 2019Q4

REPORT INFORMATION
  Report Type: Spontaneous
  Country: US (occurrence: US)
  Receive Date: 20191018
  Receipt Date: 20191018
  Transmission Date: 20200122
  Serious: Yes (Other)
  Sender: FDA-Public Use
  Company Number: US-TEVA-2019-US-1124750

PATIENT
  Sex: Female

DRUGS (11)
  1. MIRTAZAPINE. [Suspect]
     Active Substance: MIRTAZAPINE
     Indication: DECREASED APPETITE
     Route: 065
  2. METOPROLOL. [Concomitant]
     Active Substance: METOPROLOL
  3. ESCITALOPRAM [Concomitant]
     Active Substance: ESCITALOPRAM OXALATE
  4. BUPROPION. [Concomitant]
     Active Substance: BUPROPION
  5. LISINOPRIL. [Concomitant]
     Active Substance: LISINOPRIL
  6. GABAPENTIN. [Concomitant]
     Active Substance: GABAPENTIN
  7. HYDROCHLOROTHIAZIDE AND LISINOPRIL [Concomitant]
     Active Substance: HYDROCHLOROTHIAZIDE\LISINOPRIL
  8. ATORVASTATIN [Concomitant]
     Active Substance: ATORVASTATIN
  9. OMEGA 3 [Concomitant]
     Active Substance: OMEGA-3 FATTY ACIDS
  10. VITAMIN D3 [Concomitant]
     Active Substance: CHOLECALCIFEROL
  11. BUSPIRONE [Concomitant]
     Active Substance: BUSPIRONE HYDROCHLORIDE

REACTIONS (1)
  - Loss of consciousness [Unknown]
